FAERS Safety Report 8712145 (Version 2)
Quarter: 2013Q4

REPORT INFORMATION
  Report Type: Spontaneous
  Country: US (occurrence: US)
  Receive Date: 20120807
  Receipt Date: 20131031
  Transmission Date: 20140711
  Serious: No
  Sender: FDA-Public Use
  Company Number: US-009507513-2012SP036498

PATIENT
  Age: 58 Year
  Sex: Female

DRUGS (1)
  1. CLARITIN REDITABS [Suspect]
     Indication: RHINORRHOEA
     Dosage: UNK UNK, UNKNOWN
     Route: 048
     Dates: start: 201206

REACTIONS (1)
  - Drug ineffective [Unknown]
